FAERS Safety Report 5619364-6 (Version None)
Quarter: 2008Q1

REPORT INFORMATION
  Report Type: 
  Country: None (occurrence: None)
  Receive Date: 20080114
  Receipt Date: 20061127
  Transmission Date: 20080703
  Serious: Yes (Other)
  Sender: FDA-Public Use
  Company Number: A03200607125

PATIENT
  Age: 86 Year
  Sex: Male

DRUGS (1)
  1. PLAVIX [Suspect]
     Dosage: ORAL
     Route: 048

REACTIONS (4)
  - CONTUSION [None]
  - DYSARTHRIA [None]
  - HAEMORRHAGE INTRACRANIAL [None]
  - MONOPLEGIA [None]
